FAERS Safety Report 4852290-9 (Version None)
Quarter: 2005Q4

REPORT INFORMATION
  Report Type: 
  Country: None (occurrence: None)
  Receive Date: 20051213
  Receipt Date: 20051114
  Transmission Date: 20060501
  Serious: Yes (Death)
  Sender: FDA-Public Use
  Company Number: US-MERCK-0511USA02262

PATIENT
  Age: 69 Year
  Sex: Male
  Weight: 77 kg

DRUGS (9)
  1. VIOXX [Suspect]
     Indication: ARTHRITIS
     Route: 048
     Dates: start: 20010524, end: 20021025
  2. VIOXX [Suspect]
     Route: 048
     Dates: start: 20020301, end: 20021024
  3. VIOXX [Suspect]
     Indication: JOINT SPRAIN
     Route: 048
     Dates: start: 20010524, end: 20021025
  4. VIOXX [Suspect]
     Route: 048
     Dates: start: 20020301, end: 20021024
  5. LIPITOR [Concomitant]
     Route: 065
  6. LIPITOR [Concomitant]
     Route: 065
  7. FLOVENT [Concomitant]
     Route: 055
  8. ATROVENT [Concomitant]
     Route: 055
  9. ALBUTEROL [Concomitant]
     Route: 065

REACTIONS (3)
  - ACUTE MYOCARDIAL INFARCTION [None]
  - ARTERIOSCLEROSIS [None]
  - BENIGN LUNG NEOPLASM [None]
